FAERS Safety Report 23179428 (Version 4)
Quarter: 2023Q4

REPORT INFORMATION
  Report Type: Report from Study
  Country: US (occurrence: US)
  Receive Date: 20231113
  Receipt Date: 20231222
  Transmission Date: 20240110
  Serious: Yes (Death, Other)
  Sender: FDA-Public Use
  Company Number: US-ABBVIE-5477473

PATIENT
  Sex: Female

DRUGS (5)
  1. VENCLEXTA [Suspect]
     Active Substance: VENETOCLAX
     Indication: Waldenstrom^s macroglobulinaemia
     Dosage: 100MG DAILY FOR 7 DAYS,?THEN 200MG DAILY FOR 7 DAYS
     Route: 048
     Dates: start: 20231108
  2. VENCLEXTA [Suspect]
     Active Substance: VENETOCLAX
     Indication: Waldenstrom^s macroglobulinaemia
     Dosage: 20MG DAILY FOR 7 DAYS
     Route: 048
     Dates: start: 20231025, end: 20231031
  3. VENCLEXTA [Suspect]
     Active Substance: VENETOCLAX
     Indication: Waldenstrom^s macroglobulinaemia
     Dosage: THEN 50MG DAILY 7 DAYS
     Route: 048
     Dates: start: 20231101, end: 20231107
  4. VENCLEXTA [Suspect]
     Active Substance: VENETOCLAX
     Indication: Waldenstrom^s macroglobulinaemia
     Dosage: THEN 100MG DAILY FOR 7 DAYS?FORM STRENGTH: 100 MG
     Route: 048
  5. VENCLEXTA [Suspect]
     Active Substance: VENETOCLAX
     Indication: Waldenstrom^s macroglobulinaemia
     Dosage: THEN 200MG DAILY FOR 7 DAYS?FORM STRENGTH: 200 MG
     Route: 048

REACTIONS (3)
  - Death [Fatal]
  - Off label use [Unknown]
  - Lymphoma [Unknown]

NARRATIVE: CASE EVENT DATE: 20230101
